FAERS Safety Report 6781914-4 (Version None)
Quarter: 2010Q2

REPORT INFORMATION
  Report Type: 
  Country: None (occurrence: None)
  Receive Date: 20100621
  Receipt Date: 20100615
  Transmission Date: 20101027
  Serious: Yes (Life-Threatening, Hospitalization)
  Sender: FDA-Public Use
  Company Number: FR-ASTRAZENECA-2010SE27814

PATIENT
  Age: 64 Year
  Sex: Male

DRUGS (7)
  1. DIPRIVAN [Suspect]
     Indication: INDUCTION OF ANAESTHESIA
     Route: 042
     Dates: start: 20100312, end: 20100312
  2. SUFENTA PRESERVATIVE FREE [Suspect]
     Indication: INDUCTION OF ANAESTHESIA
     Route: 042
     Dates: start: 20100312, end: 20100312
  3. AUGMENTIN '125' [Suspect]
     Indication: ANTIBIOTIC PROPHYLAXIS
     Route: 042
     Dates: start: 20100312
  4. AMAREL [Concomitant]
     Indication: TYPE 2 DIABETES MELLITUS
     Route: 048
  5. LEVEMIR [Concomitant]
     Indication: TYPE 2 DIABETES MELLITUS
     Route: 048
  6. CREON [Concomitant]
     Indication: PANCREATITIS
     Route: 048
  7. SEVORANE [Concomitant]
     Indication: INDUCTION OF ANAESTHESIA
     Dates: start: 20100312

REACTIONS (1)
  - ANAPHYLACTIC SHOCK [None]
